FAERS Safety Report 7659179-0 (Version None)
Quarter: 2011Q3

REPORT INFORMATION
  Report Type: 
  Country: None (occurrence: None)
  Receive Date: 20110805
  Receipt Date: 20110727
  Transmission Date: 20111222
  Serious: Yes (Hospitalization)
  Sender: FDA-Public Use
  Company Number: GB-GLAXOSMITHKLINE-B0737176A

PATIENT
  Sex: Male

DRUGS (10)
  1. CHLORAMBUCIL [Suspect]
     Indication: CHRONIC LYMPHOCYTIC LEUKAEMIA
     Dosage: 22MG CYCLIC
     Route: 048
     Dates: start: 20081125
  2. RAMIPRIL [Concomitant]
     Dates: start: 20090901
  3. COTRIM [Concomitant]
     Dates: start: 20081122
  4. MABTHERA [Suspect]
     Indication: CHRONIC LYMPHOCYTIC LEUKAEMIA
     Dosage: 1100MG MONTHLY
     Route: 042
     Dates: start: 20081125
  5. ACYCLOVIR [Concomitant]
     Dates: start: 20081126
  6. LANSOPRAZOLE [Concomitant]
     Dates: start: 20081126
  7. AMLODIPINE [Concomitant]
     Dates: start: 20040101
  8. METOCLOPRAMIDE [Concomitant]
     Dates: start: 20090225
  9. FLUCONAZOLE [Concomitant]
     Dates: start: 20081126
  10. CO-DYDRAMOL [Concomitant]
     Dates: start: 20090121

REACTIONS (1)
  - NEUTROPENIC SEPSIS [None]
